FAERS Safety Report 9538102 (Version 1)
Quarter: 2013Q3

REPORT INFORMATION
  Report Type: Spontaneous
  Country: US (occurrence: US)
  Receive Date: 20130920
  Receipt Date: 20130920
  Transmission Date: 20140515
  Serious: Yes (Other)
  Sender: FDA-Public Use
  Company Number: US-BIOGENIDEC-2013BI089131

PATIENT
  Sex: Female

DRUGS (1)
  1. AVONEX [Suspect]
     Indication: MULTIPLE SCLEROSIS
     Route: 030

REACTIONS (7)
  - Tuberculosis [Not Recovered/Not Resolved]
  - Abnormal dreams [Unknown]
  - Pain of skin [Unknown]
  - Injection site bruising [Unknown]
  - Gait disturbance [Unknown]
  - Injection site pain [Unknown]
  - Insomnia [Unknown]
